FAERS Safety Report 7841162-3 (Version None)
Quarter: 2011Q3

REPORT INFORMATION
  Report Type: 
  Country: None (occurrence: None)
  Receive Date: 20110901
  Receipt Date: 20110121
  Transmission Date: 20111222
  Serious: Yes (Hospitalization, Disabling, Other)
  Sender: FDA-Public Use
  Company Number: 264276USA

PATIENT
  Sex: Male

DRUGS (2)
  1. METOCLOPRAMIDE [Suspect]
     Indication: GASTRIC DISORDER
  2. METOCLOPRAMIDE [Suspect]
     Indication: GASTRIC DISORDER

REACTIONS (9)
  - EXTRAPYRAMIDAL DISORDER [None]
  - NERVOUSNESS [None]
  - AKATHISIA [None]
  - MOVEMENT DISORDER [None]
  - NERVOUS SYSTEM DISORDER [None]
  - GRIMACING [None]
  - OVERDOSE [None]
  - TARDIVE DYSKINESIA [None]
  - DYSKINESIA [None]
